FAERS Safety Report 7624393-7 (Version None)
Quarter: 2011Q3

REPORT INFORMATION
  Report Type: 
  Country: None (occurrence: None)
  Receive Date: 20110720
  Receipt Date: 20110719
  Transmission Date: 20111222
  Serious: Yes (Other)
  Sender: FDA-Public Use
  Company Number: CH-PFIZER INC-2011163075

PATIENT
  Age: 64 Year
  Sex: Male

DRUGS (6)
  1. ATORVASTATIN CALCIUM [Suspect]
     Dosage: UNK
     Route: 048
  2. ASPIRIN [Concomitant]
     Dosage: UNK
     Route: 048
  3. IRBESARTAN + HYDROCHLOROTHIAZIDE [Concomitant]
     Dosage: UNK
     Route: 048
  4. LEVEMIR [Concomitant]
     Dosage: UNK
     Route: 058
  5. NEBIVOLOL HCL [Concomitant]
     Dosage: UNK
     Route: 048
  6. NOVORAPID [Concomitant]
     Dosage: UNK
     Route: 058

REACTIONS (2)
  - PRURITUS [None]
  - ERYTHEMA MULTIFORME [None]
